FAERS Safety Report 22714281 (Version 2)
Quarter: 2023Q4

REPORT INFORMATION
  Report Type: Spontaneous
  Country: FR (occurrence: FR)
  Receive Date: 20230718
  Receipt Date: 20231030
  Transmission Date: 20240110
  Serious: Yes (Hospitalization)
  Sender: FDA-Public Use
  Company Number: None

PATIENT
  Age: 14 Year
  Sex: Female
  Weight: 55.4 kg

DRUGS (1)
  1. XARELTO [Suspect]
     Active Substance: RIVAROXABAN
     Indication: Anticoagulant therapy
     Dosage: 20 MG, QD
     Route: 048
     Dates: start: 20230629, end: 20230704

REACTIONS (2)
  - Deep vein thrombosis [Recovered/Resolved]
  - Product prescribing issue [Recovered/Resolved]

NARRATIVE: CASE EVENT DATE: 20230701
